FAERS Safety Report 10971652 (Version 1)
Quarter: 2015Q1

REPORT INFORMATION
  Report Type: Spontaneous
  Country: US (occurrence: US)
  Receive Date: 20150331
  Receipt Date: 20150331
  Transmission Date: 20150721
  Serious: Yes (Death, Life-Threatening, Hospitalization, Other)
  Sender: FDA-Public Use
  Company Number: US-ASTRAZENECA-2015SE29056

PATIENT
  Age: 48 Year
  Sex: Female
  Weight: 52.2 kg

DRUGS (8)
  1. ALPRAZOLAM. [Concomitant]
     Active Substance: ALPRAZOLAM
  2. SEROQUEL [Suspect]
     Active Substance: QUETIAPINE FUMARATE
     Route: 048
     Dates: start: 201409
  3. LATUDA [Suspect]
     Active Substance: LURASIDONE HYDROCHLORIDE
     Indication: PRODUCT USED FOR UNKNOWN INDICATION
     Route: 065
     Dates: start: 20141216
  4. ALCOHOL. [Suspect]
     Active Substance: ALCOHOL
     Route: 065
     Dates: start: 20141216
  5. LATUDA [Suspect]
     Active Substance: LURASIDONE HYDROCHLORIDE
     Indication: PRODUCT USED FOR UNKNOWN INDICATION
     Route: 065
     Dates: start: 201408
  6. METHAMPHETAMINE [Concomitant]
     Active Substance: METHAMPHETAMINE
  7. ALCOHOL. [Suspect]
     Active Substance: ALCOHOL
     Route: 065
     Dates: start: 201408
  8. SEROQUEL [Suspect]
     Active Substance: QUETIAPINE FUMARATE
     Route: 048
     Dates: start: 20141216

REACTIONS (4)
  - Completed suicide [Fatal]
  - Respiratory disorder [Unknown]
  - Overdose [Fatal]
  - Suicide attempt [Unknown]

NARRATIVE: CASE EVENT DATE: 201409
